FAERS Safety Report 7279628 (Version 5)
Quarter: 2013Q1

REPORT INFORMATION
  Report Type: Report from Study
  Country: FR (occurrence: FR)
  Receive Date: 20100216
  Receipt Date: 20130325
  Transmission Date: 20140127
  Serious: Yes (Hospitalization)
  Sender: FDA-Public Use
  Company Number: FR-ROCHE-683730

PATIENT
  Age: 43 Year
  Sex: Female
  Weight: 73 kg

DRUGS (2)
  1. TRASTUZUMAB [Suspect]
     Indication: BREAST CANCER
     Dosage: DOSAGE FORM: VIALS. DOSE LEVEL: 8 MG/KG. LAST DOSE PRIOR TO SAE: 21 JAN 2010
     Route: 042
  2. DOCETAXEL [Suspect]
     Indication: BREAST CANCER
     Dosage: DOSAGE FORM: VIALS. DOSE LEVEL: 100 MG/M2. LAST DOSE PRIOR TO SAE: 21 JAN 2010
     Route: 042

REACTIONS (1)
  - Febrile neutropenia [Recovered/Resolved]
